FAERS Safety Report 10901823 (Version 2)
Quarter: 2015Q1

REPORT INFORMATION
  Report Type: Report from Study
  Country: US (occurrence: US)
  Receive Date: 20150310
  Receipt Date: 20150317
  Transmission Date: 20150721
  Serious: Yes (Hospitalization)
  Sender: FDA-Public Use
  Company Number: US-MERCK-1503USA002359

PATIENT
  Age: 46 Year
  Sex: Male
  Weight: 87 kg

DRUGS (6)
  1. DEXAMETHASONE. [Suspect]
     Active Substance: DEXAMETHASONE
     Indication: PLASMA CELL MYELOMA
     Dosage: 20 MG, ON DAYS 1, 2, 8, 9 15 AND 16, , EVERY CYCLE 28 DAYS
     Route: 048
     Dates: start: 20141112
  2. MK-7965 [Suspect]
     Active Substance: DINACICLIB
     Dosage: 12 MG/M2, 2 HOURS ON DAYS 1,8 AND 15, , EVERY CYCLE 28 DAYS
     Route: 042
     Dates: start: 20150212, end: 20150226
  3. BORTEZOMIB [Suspect]
     Active Substance: BORTEZOMIB
     Dosage: 1.3 MG/M2, ON DAYS 1,8 AND 15, , EVERY CYCLE 28 DAYS
     Route: 058
     Dates: start: 20150212, end: 20150226
  4. DEXAMETHASONE. [Suspect]
     Active Substance: DEXAMETHASONE
     Dosage: 20 MG, ON DAYS 1, 2, 8, 9 15 AND 16, , EVERY CYCLE 28 DAYS
     Route: 048
     Dates: start: 20150212, end: 20150227
  5. BORTEZOMIB [Suspect]
     Active Substance: BORTEZOMIB
     Indication: PLASMA CELL MYELOMA
     Dosage: 1.3 MG/M2, ON DAYS 1,8 AND 15, , EVERY CYCLE 28 DAYS
     Route: 058
     Dates: start: 20141112
  6. MK-7965 [Suspect]
     Active Substance: DINACICLIB
     Indication: PLASMA CELL MYELOMA
     Dosage: 12 MG/M2, 2 HOURS ON DAYS 1,8 AND 15, , EVERY CYCLE 28 DAYS
     Route: 042
     Dates: start: 20141112

REACTIONS (1)
  - Lung infection [Recovered/Resolved]

NARRATIVE: CASE EVENT DATE: 20150302
